FAERS Safety Report 5354548-6 (Version None)
Quarter: 2007Q2

REPORT INFORMATION
  Report Type: 
  Country: None (occurrence: None)
  Receive Date: 20070608
  Receipt Date: 20070605
  Transmission Date: 20071010
  Serious: Yes (Death)
  Sender: FDA-Public Use
  Company Number: 056-C5013-07051461

PATIENT
  Age: 79 Year
  Sex: Female

DRUGS (2)
  1. CC-5013 (LENALIDOMIDE) (CAPSULES) [Suspect]
     Indication: MULTIPLE MYELOMA
     Dosage: 25 MG, DAILY, ORAL
     Route: 048
     Dates: end: 20070101
  2. DEXAMETHASONE 0.5MG TAB [Concomitant]

REACTIONS (2)
  - ASTHMA [None]
  - RESPIRATORY DISTRESS [None]
